FAERS Safety Report 7701791-4 (Version None)
Quarter: 2011Q3

REPORT INFORMATION
  Report Type: 
  Country: None (occurrence: None)
  Receive Date: 20110822
  Receipt Date: 20110809
  Transmission Date: 20111222
  Serious: Yes (Hospitalization)
  Sender: FDA-Public Use
  Company Number: JP-ASTRAZENECA-2011SE49495

PATIENT
  Age: 70 Year
  Sex: Female

DRUGS (2)
  1. MEROPENEM [Suspect]
     Indication: CELLULITIS
     Route: 042
  2. MEROPENEM [Suspect]
     Indication: INFECTION
     Route: 042

REACTIONS (1)
  - HEPATIC FUNCTION ABNORMAL [None]
